FAERS Safety Report 19680706 (Version 1)
Quarter: 2021Q3

REPORT INFORMATION
  Report Type: Spontaneous
  Country: US (occurrence: US)
  Receive Date: 20210810
  Receipt Date: 20210810
  Transmission Date: 20211014
  Serious: Yes (Hospitalization)
  Sender: FDA-Public Use
  Company Number: US-MYLANLABS-2021M1050276

PATIENT
  Age: 36 Year
  Sex: Female

DRUGS (6)
  1. GLYCERYL TRINITRATE [Suspect]
     Active Substance: NITROGLYCERIN
     Indication: UTERINE ATONY
     Dosage: UNK
     Route: 065
  2. FENTANYL. [Suspect]
     Active Substance: FENTANYL
     Indication: PRODUCT USED FOR UNKNOWN INDICATION
     Dosage: UNK
     Route: 030
  3. ROCURONIUM [Suspect]
     Active Substance: ROCURONIUM BROMIDE
     Indication: UTERINE ATONY
     Dosage: UNK
     Route: 030
  4. TERBUTALINE [Suspect]
     Active Substance: TERBUTALINE
     Indication: UTERINE ATONY
     Dosage: UNK
     Route: 065
  5. RINGERS SOLUTION [Suspect]
     Active Substance: CALCIUM CHLORIDE\POTASSIUM CHLORIDE\SODIUM CHLORIDE
     Indication: UTERINE ATONY
     Dosage: RAPID IV INFUSION DEVICE WAS USED TO INFUSE WARM LACTATED RINGER^S LACTATE SOLUTION
     Route: 041
  6. ATROPINE. [Suspect]
     Active Substance: ATROPINE
     Indication: BRADYCARDIA FOETAL
     Dosage: UNK
     Route: 030

REACTIONS (2)
  - Drug ineffective [Unknown]
  - Maternal exposure during pregnancy [Recovered/Resolved]
